FAERS Safety Report 9109135 (Version 5)
Quarter: 2013Q4

REPORT INFORMATION
  Report Type: Report from Study
  Country: JP (occurrence: JP)
  Receive Date: 20130222
  Receipt Date: 20131120
  Transmission Date: 20140711
  Serious: Yes (Hospitalization)
  Sender: FDA-Public Use
  Company Number: JP-GLAXOSMITHKLINE-B0868710A

PATIENT
  Age: 68 Year
  Sex: Female

DRUGS (11)
  1. REVOLADE [Suspect]
     Indication: IMMUNE THROMBOCYTOPENIC PURPURA
     Route: 048
     Dates: start: 20110824, end: 20110921
  2. REVOLADE [Suspect]
     Indication: IMMUNE THROMBOCYTOPENIC PURPURA
     Dosage: 12.5MG PER DAY
     Route: 048
     Dates: start: 20110922, end: 20111004
  3. REVOLADE [Suspect]
     Indication: IMMUNE THROMBOCYTOPENIC PURPURA
     Route: 048
     Dates: start: 20111005, end: 20111211
  4. REVOLADE [Suspect]
     Indication: IMMUNE THROMBOCYTOPENIC PURPURA
     Route: 048
     Dates: start: 20111212, end: 20120115
  5. REVOLADE [Suspect]
     Indication: IMMUNE THROMBOCYTOPENIC PURPURA
     Dosage: 37.5MG PER DAY
     Route: 048
     Dates: start: 20120116, end: 20130214
  6. PREDONINE [Concomitant]
     Indication: IMMUNE THROMBOCYTOPENIC PURPURA
     Route: 048
     Dates: start: 20110411
  7. PREDONINE [Concomitant]
     Indication: IMMUNE THROMBOCYTOPENIC PURPURA
     Route: 048
  8. PREDONINE [Concomitant]
     Indication: IMMUNE THROMBOCYTOPENIC PURPURA
     Dosage: 5MG PER DAY
     Route: 048
  9. PARIET [Concomitant]
     Indication: PROPHYLAXIS
     Dosage: 10MG PER DAY
     Route: 048
     Dates: start: 20110411
  10. ALFAROL [Concomitant]
     Indication: PROPHYLAXIS
     Dosage: 1MCG PER DAY
     Route: 048
     Dates: start: 20110411
  11. BONALON [Concomitant]
     Indication: PROPHYLAXIS
     Route: 048
     Dates: start: 20110411

REACTIONS (5)
  - Basedow^s disease [Unknown]
  - Hepatic function abnormal [Recovered/Resolved]
  - Hyperthyroidism [Not Recovered/Not Resolved]
  - Palpitations [Unknown]
  - Insomnia [Unknown]
